FAERS Safety Report 9269080 (Version 2)
Quarter: 2013Q2

REPORT INFORMATION
  Report Type: Spontaneous
  Country: US (occurrence: US)
  Receive Date: 20130503
  Receipt Date: 20130523
  Transmission Date: 20140414
  Serious: No
  Sender: FDA-Public Use
  Company Number: US-009507513-1305USA000578

PATIENT
  Age: 34 Year
  Sex: Female
  Weight: 55.33 kg

DRUGS (1)
  1. NUVARING [Suspect]
     Indication: CONTRACEPTION
     Dosage: 1 RING FOR 3 WEEKS FOLLOWE BY A WEEK FREE BREAK
     Route: 067
     Dates: start: 201208

REACTIONS (2)
  - Metrorrhagia [Unknown]
  - Inappropriate schedule of drug administration [Unknown]
